FAERS Safety Report 24732858 (Version 1)
Quarter: 2024Q4

REPORT INFORMATION
  Report Type: Spontaneous
  Country: GB (occurrence: GB)
  Receive Date: 20241213
  Receipt Date: 20241213
  Transmission Date: 20250115
  Serious: Yes (Disabling)
  Sender: RANBAXY
  Company Number: GB-MYLANLABS-2024M1106606

PATIENT
  Age: 54 Year
  Sex: Male

DRUGS (1)
  1. SERTRALINE [Suspect]
     Active Substance: SERTRALINE HYDROCHLORIDE
     Indication: Product used for unknown indication
     Dosage: UNK
     Route: 065
     Dates: end: 20210607

REACTIONS (2)
  - Adverse drug reaction [Recovering/Resolving]
  - Withdrawal syndrome [Recovering/Resolving]
